APPROVED DRUG PRODUCT: CANDESARTAN CILEXETIL AND HYDROCHLOROTHIAZIDE
Active Ingredient: CANDESARTAN CILEXETIL; HYDROCHLOROTHIAZIDE
Strength: 32MG;12.5MG
Dosage Form/Route: TABLET;ORAL
Application: A202884 | Product #002
Applicant: APOTEX INC
Approved: Dec 4, 2012 | RLD: No | RS: No | Type: DISCN